FAERS Safety Report 9154083 (Version 1)
Quarter: 2013Q1

REPORT INFORMATION
  Report Type: Spontaneous
  Country: US (occurrence: None)
  Receive Date: 20130308
  Receipt Date: 20130308
  Transmission Date: 20140127
  Serious: Yes (Other)
  Sender: FDA-Public Use
  Company Number: None

PATIENT
  Age: 27 Year
  Sex: Female
  Weight: 61.24 kg

DRUGS (2)
  1. CEFDINIR [Suspect]
     Indication: OROPHARYNGEAL PAIN
     Dosage: 300MG BID PO
     Route: 048
     Dates: start: 20130117, end: 20130125
  2. CEFDINIR [Suspect]
     Indication: RESPIRATORY TRACT INFECTION
     Dosage: 300MG BID PO
     Route: 048
     Dates: start: 20130117, end: 20130125

REACTIONS (9)
  - Influenza like illness [None]
  - Joint stiffness [None]
  - Diarrhoea [None]
  - Arthralgia [None]
  - Joint stiffness [None]
  - Joint swelling [None]
  - Weight bearing difficulty [None]
  - Impaired work ability [None]
  - Musculoskeletal pain [None]
